FAERS Safety Report 24720645 (Version 2)
Quarter: 2025Q1

REPORT INFORMATION
  Report Type: Report from Study
  Country: DE (occurrence: DE)
  Receive Date: 20241211
  Receipt Date: 20250219
  Transmission Date: 20250409
  Serious: Yes (Hospitalization)
  Sender: OCTAPHARMA
  Company Number: DE-OCTA-2024000143

PATIENT
  Sex: Male

DRUGS (2)
  1. OCTAGAM IMMUNE GLOBULIN (HUMAN) [Suspect]
     Active Substance: HUMAN IMMUNOGLOBULIN G
     Indication: Immunomodulatory therapy
     Dosage: APPROX ONCE EVERY 2 MONTHS
     Route: 042
     Dates: start: 20240409, end: 20240409
  2. OCTAGAM IMMUNE GLOBULIN (HUMAN) [Suspect]
     Active Substance: HUMAN IMMUNOGLOBULIN G
     Dosage: APPROX ONCE EVERY 2 MONTHS
     Route: 042
     Dates: start: 20240409, end: 20240409

REACTIONS (1)
  - Cerebrovascular accident [Unknown]
